FAERS Safety Report 12641124 (Version 2)
Quarter: 2017Q3

REPORT INFORMATION
  Report Type: Spontaneous
  Country: US (occurrence: US)
  Receive Date: 20160810
  Receipt Date: 20170918
  Transmission Date: 20171127
  Serious: Yes (Hospitalization)
  Sender: FDA-Public Use
  Company Number: US-SIGMA-TAU US-2016STPI000553

PATIENT
  Age: 67 Year
  Sex: Male

DRUGS (3)
  1. MATULANE [Suspect]
     Active Substance: PROCARBAZINE HYDROCHLORIDE
     Indication: PRODUCT USED FOR UNKNOWN INDICATION
     Dosage: 50 MG, Q48H
     Route: 048
     Dates: start: 20160603
  2. ETOPOSIDE. [Concomitant]
     Active Substance: ETOPOSIDE
  3. CYCLOPHOSPHAMIDE. [Concomitant]
     Active Substance: CYCLOPHOSPHAMIDE

REACTIONS (1)
  - Nonspecific reaction [Unknown]

NARRATIVE: CASE EVENT DATE: 201607
